FAERS Safety Report 9084175 (Version 1)
Quarter: 2013Q1

REPORT INFORMATION
  Report Type: Report from Study
  Country: US (occurrence: US)
  Receive Date: 20130131
  Receipt Date: 20130131
  Transmission Date: 20140127
  Serious: No
  Sender: FDA-Public Use
  Company Number: US-ABBOTT-12P-163-0978886-00

PATIENT
  Age: 64 Year
  Sex: Female

DRUGS (5)
  1. HUMIRA [Suspect]
     Indication: RHEUMATOID ARTHRITIS
     Dosage: INITIAL DOSE ONLY
     Dates: start: 20120801
  2. AMLODIPINE [Concomitant]
     Indication: BLOOD PRESSURE
  3. LOSARTAN POTASSIUM [Concomitant]
     Indication: BLOOD PRESSURE
  4. PREDNISONE [Concomitant]
     Indication: RHEUMATOID ARTHRITIS
  5. VIT D3 [Concomitant]
     Route: 048

REACTIONS (2)
  - Pain [Recovered/Resolved]
  - Herpes zoster [Recovered/Resolved]
